FAERS Safety Report 17750626 (Version 1)
Quarter: 2020Q2

REPORT INFORMATION
  Report Type: Spontaneous
  Country: US (occurrence: US)
  Receive Date: 20200506
  Receipt Date: 20200506
  Transmission Date: 20200714
  Serious: No
  Sender: FDA-Public Use
  Company Number: US-ASTRAZENECA-2020SE58331

PATIENT
  Weight: 77.1 kg

DRUGS (3)
  1. BASAGLIR [Concomitant]
     Indication: TYPE 2 DIABETES MELLITUS
     Dosage: 50USP UNITS DAILY
  2. BYDUREON BCISE [Suspect]
     Active Substance: EXENATIDE
     Indication: TYPE 2 DIABETES MELLITUS
     Route: 058
  3. BYDUREON [Suspect]
     Active Substance: EXENATIDE
     Indication: TYPE 2 DIABETES MELLITUS
     Route: 058

REACTIONS (5)
  - Injection site mass [Not Recovered/Not Resolved]
  - Wrong technique in device usage process [Unknown]
  - Product dose omission [Unknown]
  - Pain [Unknown]
  - Device malfunction [Unknown]
